FAERS Safety Report 9093201 (Version 1)
Quarter: 2013Q1

REPORT INFORMATION
  Report Type: Report from Study
  Country: PT (occurrence: PT)
  Receive Date: 20130201
  Receipt Date: 20130201
  Transmission Date: 20140127
  Serious: Yes (Other)
  Sender: FDA-Public Use
  Company Number: PT-ROCHE-1094465

PATIENT
  Sex: 0

DRUGS (1)
  1. RITUXIMAB [Suspect]
     Indication: RHEUMATOID ARTHRITIS
     Route: 065

REACTIONS (5)
  - Treatment failure [Unknown]
  - No therapeutic response [Unknown]
  - Transfusion reaction [Unknown]
  - Hypogammaglobulinaemia [Unknown]
  - Therapeutic product ineffective [Unknown]
